FAERS Safety Report 5311984-1 (Version None)
Quarter: 2007Q2

REPORT INFORMATION
  Report Type: 
  Country: None (occurrence: None)
  Receive Date: 20070430
  Receipt Date: 20060407
  Transmission Date: 20071010
  Serious: No
  Sender: FDA-Public Use
  Company Number: 2006UW06243

PATIENT
  Age: 62 Year
  Sex: Female
  Weight: 56.7 kg

DRUGS (6)
  1. NEXIUM [Suspect]
     Route: 048
     Dates: start: 20051201
  2. BUSPAR [Concomitant]
  3. ST. JOHNS WORT [Concomitant]
  4. TYLENOL W/ CODEINE [Concomitant]
  5. RELAFEN [Concomitant]
  6. LOVASTATIN [Concomitant]

REACTIONS (3)
  - ARTHRALGIA [None]
  - BACK PAIN [None]
  - MUSCLE SPASMS [None]
